FAERS Safety Report 5313355-0 (Version None)
Quarter: 2007Q1

REPORT INFORMATION
  Report Type: 
  Country: None (occurrence: None)
  Receive Date: 20070201
  Receipt Date: 20061212
  Transmission Date: 20070707
  Serious: No
  Sender: FDA-Public Use
  Company Number: VNL_0340_2006

PATIENT
  Age: 67 Year
  Sex: Male
  Weight: 73.9363 kg

DRUGS (4)
  1. APOKYN [Suspect]
     Indication: PARKINSON'S DISEASE
     Dosage: 0.4 ML TID SC
     Route: 058
     Dates: start: 20061130
  2. AZILECT [Suspect]
     Indication: PARKINSON'S DISEASE
     Dosage: 1 MG, QDAY
     Dates: start: 20061001, end: 20061211
  3. ^SALT SUPPLEMENT^ [Concomitant]
  4. FLORINEF [Concomitant]

REACTIONS (1)
  - BLOOD PRESSURE FLUCTUATION [None]
